FAERS Safety Report 22232982 (Version 1)
Quarter: 2023Q2

REPORT INFORMATION
  Report Type: Spontaneous
  Country: US (occurrence: None)
  Receive Date: 20230418
  Receipt Date: 20230418
  Transmission Date: 20230721
  Serious: No
  Sender: FDA-Public Use
  Company Number: None

PATIENT
  Age: 67 Year
  Sex: Female
  Weight: 68.49 kg

DRUGS (2)
  1. ORENCIA [Suspect]
     Active Substance: ABATACEPT
     Indication: Rheumatoid arthritis
     Dosage: OTHER FREQUENCY : OVER 30MINS/MONTHL;?
     Route: 042
     Dates: start: 202302
  2. ORENCIA [Suspect]
     Active Substance: ABATACEPT
     Indication: Senile osteoporosis

REACTIONS (1)
  - Abdominal pain upper [None]
